FAERS Safety Report 10265332 (Version 1)
Quarter: 2014Q2

REPORT INFORMATION
  Report Type: Spontaneous
  Country: US (occurrence: US)
  Receive Date: 20140627
  Receipt Date: 20140627
  Transmission Date: 20141212
  Serious: No
  Sender: FDA-Public Use
  Company Number: US-GLAXOSMITHKLINE-A1064379A

PATIENT
  Sex: Male

DRUGS (2)
  1. MEKINIST [Suspect]
     Indication: MALIGNANT MELANOMA
     Route: 065
     Dates: start: 20140204
  2. TAFINLAR [Suspect]
     Indication: MALIGNANT MELANOMA
     Dosage: 75MG UNKNOWN
     Route: 065
     Dates: start: 20140204

REACTIONS (2)
  - Abdominal pain [Unknown]
  - Diarrhoea [Unknown]
